FAERS Safety Report 18202477 (Version 4)
Quarter: 2020Q4

REPORT INFORMATION
  Report Type: Spontaneous
  Country: CA (occurrence: CA)
  Receive Date: 20200827
  Receipt Date: 20201218
  Transmission Date: 20210113
  Serious: Yes (Other)
  Sender: FDA-Public Use
  Company Number: CA-ORION CORPORATION ORION PHARMA-TREX2018-1146

PATIENT
  Age: 79 Year
  Sex: Female
  Weight: 87 kg

DRUGS (32)
  1. INFLECTRA [Suspect]
     Active Substance: INFLIXIMAB-DYYB
     Indication: CROHN^S DISEASE
     Dosage: 0, 2, 6 AND EVERY 8 WEEKS MAINTENANCE
     Route: 042
     Dates: start: 20180119
  2. INFLECTRA [Suspect]
     Active Substance: INFLIXIMAB-DYYB
     Dosage: EVERY 0, 2, 6 AND THEN EVERY 8 WEEKS MAINTENANCE
     Route: 042
     Dates: start: 20180820
  3. INFLECTRA [Suspect]
     Active Substance: INFLIXIMAB-DYYB
     Dosage: AT 0, 2, 6 AND EVERY 8 WEEKS MAINTENANCE
     Route: 042
     Dates: start: 20200110
  4. INFLECTRA [Suspect]
     Active Substance: INFLIXIMAB-DYYB
     Dosage: AT 0, 2, 6 AND EVERY 8 WEEKS MAINTENANCE
     Route: 042
     Dates: start: 20201016
  5. FOLIC ACID. [Concomitant]
     Active Substance: FOLIC ACID
     Route: 065
  6. INFLECTRA [Suspect]
     Active Substance: INFLIXIMAB-DYYB
     Dosage: EVERY 0, 2, 6 AND THEN EVERY 8 WEEKS MAINTENANCE
     Route: 042
     Dates: start: 20180202
  7. INFLECTRA [Suspect]
     Active Substance: INFLIXIMAB-DYYB
     Dosage: EVERY 0, 2, 6 AND THEN EVERY 8 WEEKS MAINTENANCE
     Route: 042
     Dates: start: 20180619
  8. INFLECTRA [Suspect]
     Active Substance: INFLIXIMAB-DYYB
     Dosage: AT 0, 2, 6 AND EVERY 8 WEEKS MAINTENANCE
     Route: 042
     Dates: start: 20190531
  9. INFLECTRA [Suspect]
     Active Substance: INFLIXIMAB-DYYB
     Dosage: EVERY 0, 2, 6 AND THEN EVERY 8 WEEKS MAINTENANCE
     Route: 042
     Dates: start: 20180302
  10. CALCIUM [Concomitant]
     Active Substance: CALCIUM
     Route: 065
  11. PREDNISONE. [Concomitant]
     Active Substance: PREDNISONE
     Route: 065
     Dates: start: 20171224
  12. VITAMIN K [Concomitant]
     Active Substance: PHYTONADIONE
     Route: 065
  13. INFLECTRA [Suspect]
     Active Substance: INFLIXIMAB-DYYB
     Dosage: AT 0, 2, 6 AND EVERY 8 WEEKS MAINTENANCE
     Route: 042
     Dates: start: 20181214
  14. INFLECTRA [Suspect]
     Active Substance: INFLIXIMAB-DYYB
     Dosage: AT 0, 2, 6 AND EVERY 8 WEEKS MAINTENANCE
     Route: 042
     Dates: start: 20200626
  15. MEZAVANT [Concomitant]
     Active Substance: MESALAMINE
     Route: 065
  16. METHOTREXATE (TRADE NAME UNKNOWN) [Suspect]
     Active Substance: METHOTREXATE
     Indication: PRODUCT USED FOR UNKNOWN INDICATION
     Route: 065
     Dates: start: 20171224
  17. INFLECTRA [Suspect]
     Active Substance: INFLIXIMAB-DYYB
     Dosage: AT 0, 2, 6 AND EVERY 8 WEEKS MAINTENANCE
     Route: 042
     Dates: start: 20191115
  18. INFLECTRA [Suspect]
     Active Substance: INFLIXIMAB-DYYB
     Dosage: AT 0, 2, 6 AND EVERY 8 WEEKS MAINTENANCE
     Route: 042
     Dates: start: 20200501
  19. METRONIDAZOLE. [Concomitant]
     Active Substance: METRONIDAZOLE
     Route: 065
     Dates: end: 20171123
  20. INFLECTRA [Suspect]
     Active Substance: INFLIXIMAB-DYYB
     Dosage: AT 0, 2, 6 AND EVERY 8 WEEKS MAINTENANCE
     Route: 042
     Dates: start: 20200313
  21. INFLECTRA [Suspect]
     Active Substance: INFLIXIMAB-DYYB
     Dosage: AT 0, 2, 6 AND EVERY 8 WEEKS MAINTENANCE
     Route: 042
     Dates: start: 20201211
  22. VITAMIN D [Concomitant]
     Active Substance: VITAMIN D NOS
     Route: 065
  23. INFLECTRA [Suspect]
     Active Substance: INFLIXIMAB-DYYB
     Dosage: EVERY 0, 2, 6 AND THEN EVERY 8 WEEKS MAINTENANCE
     Route: 042
     Dates: start: 20180427
  24. INFLECTRA [Suspect]
     Active Substance: INFLIXIMAB-DYYB
     Dosage: 0, 2, 6 AND EVERY 8 WEEKS MAINTENANCE
     Route: 042
     Dates: start: 20181017
  25. INFLECTRA [Suspect]
     Active Substance: INFLIXIMAB-DYYB
     Dosage: AT 0, 2, 6 AND EVERY 8 WEEKS MAINTENANCE
     Route: 042
     Dates: start: 20190726
  26. INFLECTRA [Suspect]
     Active Substance: INFLIXIMAB-DYYB
     Dosage: AT 0, 2, 6 AND EVERY 8 WEEKS MAINTENANCE
     Route: 042
     Dates: start: 20190920
  27. INFLECTRA [Suspect]
     Active Substance: INFLIXIMAB-DYYB
     Dosage: AT 0, 2, 6 AND EVERY 8 WEEKS MAINTENANCE
     Route: 042
     Dates: start: 20190211
  28. INFLECTRA [Suspect]
     Active Substance: INFLIXIMAB-DYYB
     Dosage: AT 0, 2, 6 AND EVERY 8 WEEKS MAINTENANCE
     Route: 042
     Dates: start: 20190405
  29. INFLECTRA [Suspect]
     Active Substance: INFLIXIMAB-DYYB
     Dosage: AT 0, 2, 6 AND EVERY 8 WEEKS MAINTENANCE
     Route: 042
     Dates: start: 20200821
  30. ALENDRONATE [Concomitant]
     Active Substance: ALENDRONATE SODIUM
     Route: 065
  31. GLUCOSAMINE [Concomitant]
     Active Substance: GLUCOSAMINE
     Route: 065
  32. VITALUX [Concomitant]
     Active Substance: MINERALS\VITAMINS
     Route: 065

REACTIONS (15)
  - Weight increased [Not Recovered/Not Resolved]
  - Arthralgia [Not Recovered/Not Resolved]
  - Peripheral swelling [Unknown]
  - Joint injury [Recovered/Resolved]
  - Pain in extremity [Not Recovered/Not Resolved]
  - Malaise [Not Recovered/Not Resolved]
  - Macular degeneration [Unknown]
  - Fall [Recovered/Resolved]
  - Nausea [Not Recovered/Not Resolved]
  - Drug ineffective [Recovering/Resolving]
  - Gait inability [Unknown]
  - Gastrointestinal disorder [Unknown]
  - Crohn^s disease [Unknown]
  - Joint swelling [Unknown]
  - Blood pressure systolic increased [Unknown]

NARRATIVE: CASE EVENT DATE: 201804
